FAERS Safety Report 7193348-1 (Version None)
Quarter: 2010Q4

REPORT INFORMATION
  Report Type: 
  Country: None (occurrence: None)
  Receive Date: 20101124
  Receipt Date: 20100831
  Transmission Date: 20110411
  Serious: No
  Sender: FDA-Public Use
  Company Number: 018143

PATIENT
  Sex: Female

DRUGS (1)
  1. LACOSAMIDE [Suspect]
     Dosage: (300 MG, DAILY)
     Dates: end: 20100830

REACTIONS (1)
  - IRRITABILITY [None]
